FAERS Safety Report 10149720 (Version 1)
Quarter: 2014Q2

REPORT INFORMATION
  Report Type: Spontaneous
  Country: SE (occurrence: SE)
  Receive Date: 20140502
  Receipt Date: 20140502
  Transmission Date: 20141212
  Serious: Yes (Life-Threatening)
  Sender: FDA-Public Use
  Company Number: SE-UCBSA-119793

PATIENT
  Age: 24 Year
  Sex: Male

DRUGS (1)
  1. KEPPRA [Suspect]
     Dosage: UNKNOWN DOSE

REACTIONS (1)
  - Arrhythmia [Recovered/Resolved]
